FAERS Safety Report 6285831-8 (Version None)
Quarter: 2009Q3

REPORT INFORMATION
  Report Type: 
  Country: None (occurrence: None)
  Receive Date: 20090728
  Receipt Date: 20090720
  Transmission Date: 20100115
  Serious: Yes (Hospitalization)
  Sender: FDA-Public Use
  Company Number: US-BIOGENIDEC-2009BI022860

PATIENT
  Age: 56 Year
  Sex: Female

DRUGS (4)
  1. AVONEX [Suspect]
     Indication: MULTIPLE SCLEROSIS
     Route: 030
     Dates: start: 19980801, end: 20051223
  2. AVONEX [Suspect]
     Route: 030
     Dates: start: 20060326, end: 20080101
  3. AVONEX [Suspect]
     Route: 030
     Dates: start: 20080429, end: 20080926
  4. AVONEX [Suspect]
     Route: 030
     Dates: start: 20090201, end: 20090607

REACTIONS (3)
  - ABASIA [None]
  - ARTHRALGIA [None]
  - PYREXIA [None]
